FAERS Safety Report 7917799-X (Version None)
Quarter: 2011Q4

REPORT INFORMATION
  Report Type: 
  Country: None (occurrence: None)
  Receive Date: 20111116
  Receipt Date: 20110929
  Transmission Date: 20120403
  Serious: Yes (Hospitalization, Other)
  Sender: FDA-Public Use
  Company Number: DE-ROCHE-744324

PATIENT
  Sex: Male
  Weight: 82.1 kg

DRUGS (8)
  1. KARVEA [Concomitant]
     Indication: HYPERTENSION
     Dosage: DOSE NOT PROVIDED
     Route: 048
  2. XELODA [Suspect]
     Indication: RECTAL CANCER
     Dosage: LAST DOSE PRIOR TO SAE 09 NOVEMBER 2010. DOSE REDUCED
     Route: 048
  3. OXALIPLATIN [Suspect]
     Indication: RECTAL CANCER
     Dosage: DOSE: 50 MG/M2, ON D1, 8, 15, 22 AND 29.LAST DOSE PRIOR TO SAE 08 NOV 2010.ACTUAL DOSE 827MG.
     Route: 042
  4. DIGITOXIN TAB [Concomitant]
     Indication: HYPERTENSION
     Route: 048
  5. TRIMINEURIN [Concomitant]
     Indication: DEPRESSION
     Dosage: SCHEDULING 1 X 1/2, 1 X 1/4.
     Route: 048
  6. BERLINSULIN H [Concomitant]
     Indication: DIABETES MELLITUS
     Route: 058
  7. MEMANTINE HYDROCHLORIDE [Concomitant]
     Indication: DEMENTIA
     Dosage: DOSE NOT PROVIDED
     Route: 048
  8. SIMVASTATIN [Concomitant]
     Indication: HYPERCHOLESTEROLAEMIA
     Dosage: DOSE NOT PROVIDED,SCHEDULED AS 1 X 1/2
     Route: 048

REACTIONS (2)
  - GASTROENTERITIS NOROVIRUS [None]
  - POST PROCEDURAL HAEMORRHAGE [None]
